FAERS Safety Report 9330489 (Version 1)
Quarter: 2013Q2

REPORT INFORMATION
  Report Type: Spontaneous
  Country: ES (occurrence: ES)
  Receive Date: 20130605
  Receipt Date: 20130605
  Transmission Date: 20140414
  Serious: Yes (Other)
  Sender: FDA-Public Use
  Company Number: ES-ROCHE-1230935

PATIENT
  Age: 32 Year
  Sex: Female

DRUGS (2)
  1. XOLAIR [Suspect]
     Indication: ANAPHYLACTIC REACTION
     Route: 058
     Dates: start: 20110506
  2. XOLAIR [Suspect]
     Route: 065
     Dates: start: 20130219, end: 20130219

REACTIONS (2)
  - Sjogren^s syndrome [Unknown]
  - Condition aggravated [Not Recovered/Not Resolved]
